FAERS Safety Report 5878197-6 (Version None)
Quarter: 2008Q3

REPORT INFORMATION
  Report Type: 
  Country: None (occurrence: None)
  Receive Date: 20080911
  Receipt Date: 20080908
  Transmission Date: 20090109
  Serious: Yes (Hospitalization, Other)
  Sender: FDA-Public Use
  Company Number: PHBS2008FR05672

PATIENT
  Age: 109 Year
  Sex: Female

DRUGS (1)
  1. CARBAMAZEPINE [Suspect]
     Indication: TRIGEMINAL NEURALGIA
     Dosage: 400 MG/DAY
     Route: 065

REACTIONS (10)
  - ANOREXIA [None]
  - ATAXIA [None]
  - BRADYCARDIA [None]
  - DELIRIUM [None]
  - DEPRESSED MOOD [None]
  - DRUG EFFECT DECREASED [None]
  - FALL [None]
  - FATIGUE [None]
  - HYPONATRAEMIA [None]
  - WEIGHT DECREASED [None]
